FAERS Safety Report 5806989-8 (Version None)
Quarter: 2008Q3

REPORT INFORMATION
  Report Type: 
  Country: None (occurrence: None)
  Receive Date: 20080708
  Receipt Date: 20080625
  Transmission Date: 20090109
  Serious: Yes (Death, Other)
  Sender: FDA-Public Use
  Company Number: 2008AL007864

PATIENT
  Age: 43 Year
  Sex: Female

DRUGS (8)
  1. DIAZEPAM [Suspect]
     Dosage: QD; PO
     Route: 048
  2. CITALOPRAM HYDROBROMIDE [Suspect]
     Dosage: PO
     Route: 048
  3. PAREGORIC LIQUID USP (ALPHARMA) (PAREGORIC LIQUID USP (ALPHARMA)) [Suspect]
     Dosage: QD; PO
     Route: 048
  4. OXYCODONE HCL [Suspect]
     Dosage: PO
     Route: 048
  5. AMITRIPTYLINE HCL [Concomitant]
  6. NORTRIPTYLINE HCL [Concomitant]
  7. PROCYCLIDINE HYDROCHLORIDE 2MG TAB [Concomitant]
  8. QUETIAPINE FUMARATE [Concomitant]

REACTIONS (3)
  - DRUG ABUSE [None]
  - DRUG TOXICITY [None]
  - SUBSTANCE ABUSE [None]
